FAERS Safety Report 17262844 (Version 1)
Quarter: 2019Q4

REPORT INFORMATION
  Report Type: Spontaneous
  Country: US (occurrence: US)
  Receive Date: 20191218
  Receipt Date: 20191218
  Transmission Date: 20200122
  Serious: Yes (Hospitalization)
  Sender: FDA-Public Use
  Company Number: None

PATIENT
  Age: 74 Year
  Sex: Female

DRUGS (16)
  1. CYMBALTA [Concomitant]
     Active Substance: DULOXETINE HYDROCHLORIDE
  2. AMLODIPINE [Concomitant]
     Active Substance: AMLODIPINE BESYLATE
  3. DULEXOTINE [Concomitant]
     Active Substance: DULOXETINE
  4. SYNTHROID [Concomitant]
     Active Substance: LEVOTHYROXINE SODIUM
  5. SSD CRE [Concomitant]
  6. BACTITR ZINC [Concomitant]
  7. CEPHALEXIN. [Concomitant]
     Active Substance: CEPHALEXIN
  8. HUMIRA [Suspect]
     Active Substance: ADALIMUMAB
     Indication: PSORIATIC ARTHROPATHY
     Dosage: ?          OTHER DOSE:1 PEN;?
     Route: 058
     Dates: start: 20170205
  9. MECLIZINE [Concomitant]
     Active Substance: MECLIZINE HYDROCHLORIDE
  10. CYANOCOBALAM [Concomitant]
     Active Substance: CYANOCOBALAMIN
  11. ASPIRIN. [Concomitant]
     Active Substance: ASPIRIN
  12. LISINO/HCTZ [Concomitant]
     Active Substance: HYDROCHLOROTHIAZIDE\LISINOPRIL
  13. LORAZEPAM. [Concomitant]
     Active Substance: LORAZEPAM
  14. ATORVASTATIN [Concomitant]
     Active Substance: ATORVASTATIN
  15. ALBUTEROL. [Concomitant]
     Active Substance: ALBUTEROL
  16. OXYCODONE [Concomitant]
     Active Substance: OXYCODONE

REACTIONS (1)
  - Speech disorder [None]

NARRATIVE: CASE EVENT DATE: 20191217
